FAERS Safety Report 16656707 (Version 1)
Quarter: 2019Q3

REPORT INFORMATION
  Report Type: Spontaneous
  Country: PL (occurrence: PL)
  Receive Date: 20190801
  Receipt Date: 20190801
  Transmission Date: 20191004
  Serious: Yes (Other)
  Sender: FDA-Public Use
  Company Number: PL-BAUSCH-BL-2019-022054

PATIENT
  Age: 2 Year
  Sex: Female

DRUGS (25)
  1. VITAMIN B12 [Concomitant]
     Active Substance: CYANOCOBALAMIN
     Indication: VITAMIN B12 DEFICIENCY
     Route: 065
  2. LEVETIRACETAM. [Suspect]
     Active Substance: LEVETIRACETAM
     Indication: STATUS EPILEPTICUS
     Dosage: IN ICU
     Route: 065
  3. PHENOBARBITAL. [Suspect]
     Active Substance: PHENOBARBITAL
     Indication: PARTIAL SEIZURES
     Dosage: USED DURING THE ADMISSION BEFORE LIDOCAINE INFUSION
     Route: 065
  4. PHENOBARBITAL. [Suspect]
     Active Substance: PHENOBARBITAL
     Indication: STATUS EPILEPTICUS
  5. TETRACOSACTIDE [Suspect]
     Active Substance: COSYNTROPIN
     Indication: STATUS EPILEPTICUS
  6. THIOPENTAL [Suspect]
     Active Substance: THIOPENTAL
     Indication: STATUS EPILEPTICUS
  7. MIDANIUM [Suspect]
     Active Substance: MIDAZOLAM HYDROCHLORIDE
     Indication: STATUS EPILEPTICUS
  8. VALPROIC ACID. [Suspect]
     Active Substance: VALPROIC ACID
     Indication: STATUS EPILEPTICUS
     Dosage: USED DURING THE ADMISSION BEFORE LIDOCAINE INFUSION
     Route: 042
  9. PHENYTOIN. [Suspect]
     Active Substance: PHENYTOIN
     Indication: PARTIAL SEIZURES
     Dosage: USED DURING THE ADMISSION BEFORE LIDOCAINE INFUSION
     Route: 042
  10. PHENYTOIN. [Suspect]
     Active Substance: PHENYTOIN
     Indication: STATUS EPILEPTICUS
     Route: 048
  11. LEVETIRACETAM. [Suspect]
     Active Substance: LEVETIRACETAM
     Indication: PARTIAL SEIZURES
     Route: 065
  12. KETAMINE [Suspect]
     Active Substance: KETAMINE
     Indication: STATUS EPILEPTICUS
     Dosage: IN ICU
     Route: 065
  13. VALPROIC ACID. [Suspect]
     Active Substance: VALPROIC ACID
     Indication: PARTIAL SEIZURES
     Route: 065
  14. VALPROIC ACID. [Suspect]
     Active Substance: VALPROIC ACID
     Dosage: IN ICU
     Route: 065
  15. CLONAZEPAM. [Suspect]
     Active Substance: CLONAZEPAM
     Indication: PARTIAL SEIZURES
     Dosage: ALONG WITH DIAZEPAM
     Route: 042
  16. TOPIRAMATE. [Suspect]
     Active Substance: TOPIRAMATE
     Indication: STATUS EPILEPTICUS
     Dosage: AFTER LIDOCAINE INFUSION
     Route: 065
  17. TETRACOSACTIDE [Suspect]
     Active Substance: COSYNTROPIN
     Indication: PARTIAL SEIZURES
     Dosage: USED DURING THE ADMISSION BEFORE LIDOCAINE INFUSION
     Route: 030
  18. CLONAZEPAM. [Suspect]
     Active Substance: CLONAZEPAM
     Indication: STATUS EPILEPTICUS
     Dosage: TREATMENT DURING FOLLOW-UP
     Route: 065
  19. DIAZEPAM. [Suspect]
     Active Substance: DIAZEPAM
     Indication: PARTIAL SEIZURES
     Dosage: USED DURING THE ADMISSION BEFORE LIDOCAINE INFUSION
     Route: 065
  20. DIAZEPAM. [Suspect]
     Active Substance: DIAZEPAM
     Indication: STATUS EPILEPTICUS
  21. TOPIRAMATE. [Suspect]
     Active Substance: TOPIRAMATE
     Indication: PARTIAL SEIZURES
     Dosage: USED DURING THE ADMISSION BEFORE LIDOCAINE INFUSION
     Route: 065
  22. LAMOTRIGINE. [Suspect]
     Active Substance: LAMOTRIGINE
     Indication: PARTIAL SEIZURES
     Route: 065
  23. KETAMINE [Suspect]
     Active Substance: KETAMINE
     Indication: PARTIAL SEIZURES
  24. THIOPENTAL [Suspect]
     Active Substance: THIOPENTAL
     Indication: PARTIAL SEIZURES
     Dosage: IN ICU
     Route: 065
  25. MIDANIUM [Suspect]
     Active Substance: MIDAZOLAM HYDROCHLORIDE
     Indication: PARTIAL SEIZURES
     Dosage: IN ICU
     Route: 042

REACTIONS (1)
  - Drug resistance [Unknown]
